FAERS Safety Report 9894465 (Version 2)
Quarter: 2014Q2

REPORT INFORMATION
  Report Type: Spontaneous
  Country: US (occurrence: US)
  Receive Date: 20140213
  Receipt Date: 20140401
  Transmission Date: 20141212
  Serious: Yes (Congenital Anomaly, Other)
  Sender: FDA-Public Use
  Company Number: US-PFIZER INC-2014039940

PATIENT
  Sex: Male

DRUGS (8)
  1. ZOLOFT [Suspect]
     Dosage: UNK
     Route: 064
     Dates: start: 2009, end: 2009
  2. SERTRALINE HCL [Suspect]
     Dosage: UNK
     Route: 064
     Dates: start: 2009, end: 2009
  3. OXCARBAZEPINE [Concomitant]
     Dosage: UNK
     Route: 064
  4. TRILEPTAL [Concomitant]
     Dosage: UNK
     Route: 064
  5. TERAZOL [Concomitant]
     Dosage: UNK
     Route: 064
  6. PROCARDIA [Concomitant]
     Dosage: UNK
     Route: 064
  7. PRENATAL VITAMINS [Concomitant]
     Dosage: UNK
     Route: 064
  8. TYLENOL [Concomitant]
     Dosage: UNK
     Route: 064

REACTIONS (6)
  - Maternal exposure during pregnancy [Unknown]
  - Gastroschisis [Unknown]
  - Patent ductus arteriosus [Unknown]
  - Limb malformation [Unknown]
  - Atrial septal defect [Unknown]
  - Premature baby [Unknown]
